FAERS Safety Report 7658884-X (Version None)
Quarter: 2011Q3

REPORT INFORMATION
  Report Type: 
  Country: None (occurrence: None)
  Receive Date: 20110804
  Receipt Date: 20110804
  Transmission Date: 20111222
  Serious: Yes (Other)
  Sender: FDA-Public Use
  Company Number: None

PATIENT
  Sex: Female
  Weight: 84.369 kg

DRUGS (4)
  1. PREDNISONE [Concomitant]
  2. STELARA [Suspect]
     Dosage: 45MG/0.5ML 2ND DOSE - 1ST DOSE WAS 3/31/11 SQ
     Route: 058
     Dates: start: 20110503
  3. STELARA [Suspect]
     Dosage: 45MG/0.5ML 2ND DOSE - 1ST DOSE WAS 3/31/11 SQ
     Route: 058
     Dates: start: 20110331
  4. KENALOG [Concomitant]

REACTIONS (3)
  - ERYTHEMA NODOSUM [None]
  - PAIN IN EXTREMITY [None]
  - OEDEMA PERIPHERAL [None]
